FAERS Safety Report 6876660-2 (Version None)
Quarter: 2010Q3

REPORT INFORMATION
  Report Type: 
  Country: None (occurrence: None)
  Receive Date: 20100727
  Receipt Date: 20100721
  Transmission Date: 20110219
  Serious: Yes (Other)
  Sender: FDA-Public Use
  Company Number: BR-ROCHE-706251

PATIENT
  Sex: Male
  Weight: 97 kg

DRUGS (3)
  1. ROACUTAN [Suspect]
     Indication: ACNE
     Route: 048
     Dates: start: 20071201, end: 20080501
  2. VISCOTEARS [Concomitant]
     Dosage: ROUTE: TOPIC (EYE DROPS)
     Route: 061
  3. COCOA BUTTER [Concomitant]
     Route: 061

REACTIONS (9)
  - ACNE [None]
  - DENGUE FEVER [None]
  - DRY EYE [None]
  - DRY SKIN [None]
  - INFARCTION [None]
  - INSOMNIA [None]
  - LIP DRY [None]
  - OCULAR HYPERAEMIA [None]
  - WEIGHT INCREASED [None]
